FAERS Safety Report 9392143 (Version 2)
Quarter: 2013Q3

REPORT INFORMATION
  Report Type: Spontaneous
  Country: JP (occurrence: JP)
  Receive Date: 20130709
  Receipt Date: 20130905
  Transmission Date: 20140515
  Serious: Yes (Other)
  Sender: FDA-Public Use
  Company Number: JP-PFIZER INC-2013197442

PATIENT
  Age: 44 Year
  Sex: Female

DRUGS (5)
  1. METHYLPREDNISOLONE [Suspect]
     Indication: IMMUNOSUPPRESSION
     Dosage: UNK
  2. TACROLIMUS [Concomitant]
     Indication: IMMUNOSUPPRESSION
  3. MYCOPHENOLATE MOFETIL [Concomitant]
     Indication: IMMUNOSUPPRESSION
  4. BASILIXIMAB [Concomitant]
     Indication: IMMUNOSUPPRESSION
  5. CICLOSPORIN [Concomitant]
     Indication: IMMUNOSUPPRESSION

REACTIONS (1)
  - Toxic encephalopathy [Recovering/Resolving]
